FAERS Safety Report 6845666-1 (Version None)
Quarter: 2010Q3

REPORT INFORMATION
  Report Type: 
  Country: None (occurrence: None)
  Receive Date: 20100715
  Receipt Date: 20071211
  Transmission Date: 20110219
  Serious: No
  Sender: FDA-Public Use
  Company Number: US-PFIZER INC-2007061846

PATIENT
  Sex: Female
  Weight: 51.818 kg

DRUGS (10)
  1. CHANTIX [Suspect]
     Indication: SMOKING CESSATION THERAPY
     Dates: start: 20070718
  2. ACETYLSALICYLIC ACID [Concomitant]
  3. BENICAR [Concomitant]
     Indication: HYPERTENSION
  4. VITAMIN D [Concomitant]
  5. VITAMIN B [Concomitant]
  6. HYDROXYUREA [Concomitant]
  7. FOSAMAX [Concomitant]
  8. TIOTROPIUM BROMIDE [Concomitant]
     Indication: DYSPNOEA
  9. ADVAIR DISKUS 100/50 [Concomitant]
     Indication: DYSPNOEA
  10. OXYGEN [Concomitant]

REACTIONS (2)
  - MEDICATION ERROR [None]
  - NAUSEA [None]
